FAERS Safety Report 5277740-8 (Version None)
Quarter: 2007Q1

REPORT INFORMATION
  Report Type: 
  Country: None (occurrence: None)
  Receive Date: 20070321
  Receipt Date: 20070305
  Transmission Date: 20070707
  Serious: Yes (Hospitalization, Disabling)
  Sender: FDA-Public Use
  Company Number: 2007000326

PATIENT
  Age: 60 Year
  Sex: Male
  Weight: 69.9 kg

DRUGS (3)
  1. ERLOTINIB (TABLET) [Suspect]
     Indication: NON-SMALL CELL LUNG CANCER
     Dosage: 150 MG (QD), ORAL
     Route: 048
     Dates: start: 20070110
  2. BEVACIZUMAB OR PLACEBO (INJECTION FOR INFUSION) [Suspect]
     Indication: NON-SMALL CELL LUNG CANCER
     Dosage: 1140 MG (Q3W), INTRAVENOUS
     Route: 042
     Dates: start: 20070110
  3. BEVACIZUMAB OR PLACEBO (INJECTION FOR INFUSION) [Suspect]

REACTIONS (4)
  - EATING DISORDER [None]
  - FALL [None]
  - PAIN [None]
  - PULMONARY EMBOLISM [None]
